FAERS Safety Report 9934476 (Version 5)
Quarter: 2015Q3

REPORT INFORMATION
  Report Type: Spontaneous
  Country: JP (occurrence: None)
  Receive Date: 20140226
  Receipt Date: 20150817
  Transmission Date: 20151125
  Serious: Yes (Hospitalization, Other)
  Sender: FDA-Public Use
  Company Number: 2010JP004032

PATIENT
  Age: 37 Year
  Sex: Female
  Weight: 84 kg

DRUGS (46)
  1. PREDONINE [Suspect]
     Active Substance: PREDNISOLONE\PREDNISOLONE ACETATE\PREDNISOLONE SODIUM SUCCINATE
     Indication: LUPUS NEPHRITIS
     Route: 048
     Dates: start: 20071210, end: 20080302
  2. MYONAL /00287502/ (EPIRIZOLE HYDROCHLORIDE) [Concomitant]
  3. MELBIN (METFORMIN HYDROCHLORIDE) [Concomitant]
  4. MUCOSTA (REBAMIPIDE) [Concomitant]
  5. PLAVIX (CLOPIDGREL, BISULFATE) [Concomitant]
  6. SULFAMETHOXAZOLE W/TRIMETHOPRIM (SULFAMETHOXAZOLE, TRIMETHOPRIM) [Concomitant]
  7. GASTER [Concomitant]
     Active Substance: FAMOTIDINE
  8. DIOVAN [Concomitant]
     Active Substance: VALSARTAN
  9. PL GRAN. (CAFFEINE, PARACETAMOL, PROMETHAZINE METHYLENE DISALICYLATE, SALICYLAMIDE) [Concomitant]
  10. FERROMIA (FERROUS SODIUM CITRATE) [Concomitant]
  11. ISODINE GARGLE (POVIDONE-IODINE) [Concomitant]
  12. MUCODYNE (CARBOCISTEINE) [Concomitant]
     Active Substance: CARBOCYSTEINE
  13. APRICOT KERNEL WATER (PRUNUS ARMENIACA SEED EXTRACT) [Concomitant]
  14. BIO-THREE (BACILLUS MESENTERICUS, CLOSTRIDIUM BUTYRICUM, STREPTOCOCCUS FAECALIS) [Concomitant]
  15. ADSORBIN (ALUMINIUM SILICATE) [Concomitant]
  16. RESTAMIN (DIPHENHYDRAMINE) [Concomitant]
  17. BYETTA (EXENATIDE) [Concomitant]
  18. SENEGA /00122901/ (AMMONIUM CHLORIDE, CAPSICUM ANNUUM TINCTURE, CEPHAELIS SPP. FLUID EXTRACT, POLYGALA SENEGA EXTRACT, QUALLAJA SAPONARIA BARK EXTRACT) [Concomitant]
  19. SOL-U-CORTEF (HYDROCORTISONE SODIUM SUCCINATE) [Concomitant]
  20. GASCON (DIMETICONE) [Concomitant]
  21. TOKISHAKUYAKUSAN /08000701/ (ALISMA PLANTAGO-AQUATICA VAR, ORIENTALE TUBER, ANGELICA ACUTILOBA ROOT, ATRACTYLODES LANCEA RHIZOME, CNIDIUM OFFICINALE RHIZOME, PAEONIA LACTIFLORA ROOT, PORIA COCOS SCLEROTIUM) [Concomitant]
  22. MAGMITT (MAGNESIUM OXIDE) [Concomitant]
     Active Substance: MAGNESIUM OXIDE
  23. PROGRAF [Suspect]
     Active Substance: TACROLIMUS\TACROLIMUS ANHYDROUS
     Indication: LUPUS NEPHRITIS
     Route: 048
     Dates: start: 20071210, end: 20080302
  24. BAYASPIRIN (ACETYLSALICYLIC ACID) (ACETYLSALICYLIC ACID) [Concomitant]
     Active Substance: ASPIRIN
  25. NIFLEC (MACROGOL, POTASSIUM CHLORIDE, SODIUM BICARBONATE, SODIUM CHLORIDE, SODIUM SULFATE ANHYDROUS)RBAL EXTRACT NOS) [Concomitant]
  26. GLUCAGON (GLUCAGON) [Concomitant]
  27. VEEN D (CALCIUMCHLORIDE DIHYDRATE, GLUCOSE, POTASSIUM CHLORIDE, SODIUM ACETATE, SODIUM ACETATE, SODIUM CHLORIDE) [Concomitant]
  28. LASIX [Concomitant]
     Active Substance: FUROSEMIDE
  29. ASTOMIN (DIMEMORFAN) [Concomitant]
  30. CLARITH (CLARITHROMYCIN) [Concomitant]
  31. GLIMICRON (GLICLAZIDE) [Concomitant]
     Active Substance: GLICLAZIDE
  32. LAMISIL /00992601/ TERBINAFINE) [Concomitant]
  33. NEXIUM /01479302/ ESOMEPRAZOLE MAGNESIUM) [Concomitant]
  34. NORVASC [Concomitant]
     Active Substance: AMLODIPINE BESYLATE
  35. RESPLEN (EPRAZINONE HYDROCHLORIDE) [Concomitant]
  36. CALONAL (PARACETAMOL) [Concomitant]
  37. BONALON (ALENDRONATE SODIUM) [Concomitant]
  38. METGLUCO [Concomitant]
     Active Substance: METFORMIN HYDROCHLORIDE
  39. LOXONIN (LOXOPROFEN SODIUM) [Concomitant]
     Active Substance: LOXOPROFEN SODIUM
  40. LAXOBERON (SODIUM PICOSULFATE) [Concomitant]
     Active Substance: SODIUM PICOSULFATE
  41. VOLTAREN /00372301/ (DICLOFENAC) [Concomitant]
  42. BASEN /01290601/ (VOGLIBOSE) [Concomitant]
  43. OPISEZOL-CODEINE (DIHYDROCODEINE PHOSPHATE, GLYCYRRHIZA GLABRA EXTRACT, HERBAL EXTRACT NOS) [Concomitant]
  44. OPISEZOL A (PAEONIA LACTIFLORA, PLANTAGO SPP, HERB, PLATYCODON GRANDIFLORUS) [Concomitant]
  45. PREDONINE /00016203/ (PREDNISOLONE SODIUM SUCCINATE) [Concomitant]
  46. KEISHIBUKURYOGAN (HERBAL EXTRACT NOS) [Concomitant]

REACTIONS (23)
  - Angina pectoris [None]
  - Headache [None]
  - Temporomandibular joint syndrome [None]
  - Constipation [None]
  - Hypertension [None]
  - Arthralgia [None]
  - Upper respiratory tract infection [None]
  - Glycosylated haemoglobin increased [None]
  - Off label use [None]
  - Nasopharyngitis [None]
  - Iron deficiency anaemia [None]
  - Diabetes mellitus [None]
  - Diarrhoea [None]
  - Large intestine polyp [None]
  - Oedema [None]
  - Vomiting [None]
  - Eczema [None]
  - Vulvovaginal candidiasis [None]
  - Premenstrual syndrome [None]
  - Gastroenteritis [None]
  - Glucose urine present [None]
  - Gastroenteritis viral [None]
  - Nausea [None]

NARRATIVE: CASE EVENT DATE: 20080428
